FAERS Safety Report 15985547 (Version 3)
Quarter: 2019Q3

REPORT INFORMATION
  Report Type: Report from Study
  Country: CA (occurrence: CA)
  Receive Date: 20190220
  Receipt Date: 20190903
  Transmission Date: 20191004
  Serious: Yes (Other)
  Sender: FDA-Public Use
  Company Number: PHHY2016CA095774

PATIENT
  Age: 7 Year
  Sex: Male

DRUGS (10)
  1. EXJADE [Suspect]
     Active Substance: DEFERASIROX
     Indication: THALASSAEMIA
     Dosage: 500 MG, QD
     Route: 048
     Dates: start: 20140515
  2. JADENU [Suspect]
     Active Substance: DEFERASIROX
     Dosage: 260 MG, QD
     Route: 048
  3. JADENU [Suspect]
     Active Substance: DEFERASIROX
     Dosage: 450 MG, QD
     Route: 048
     Dates: start: 20160603
  4. VITAMIN D [Concomitant]
     Active Substance: VITAMIN D NOS
     Indication: PRODUCT USED FOR UNKNOWN INDICATION
     Route: 065
  5. MULTI VITAMIN [Concomitant]
     Active Substance: VITAMINS
     Indication: PRODUCT USED FOR UNKNOWN INDICATION
     Route: 065
  6. JADENU [Suspect]
     Active Substance: DEFERASIROX
     Dosage: UNK
     Route: 048
     Dates: end: 20190121
  7. JADENU [Suspect]
     Active Substance: DEFERASIROX
     Indication: THALASSAEMIA
     Dosage: 360 MG, QD
     Route: 048
     Dates: start: 20160603
  8. JADENU [Suspect]
     Active Substance: DEFERASIROX
     Dosage: 450 MG, QD
     Route: 048
     Dates: start: 201711
  9. JADENU [Suspect]
     Active Substance: DEFERASIROX
     Dosage: 270 MG, QD
     Route: 048
     Dates: start: 20190603
  10. JADENU [Suspect]
     Active Substance: DEFERASIROX
     Dosage: 360 MG, QD
     Route: 048
     Dates: start: 20171020

REACTIONS (21)
  - Faecaloma [Recovering/Resolving]
  - Nasopharyngitis [Unknown]
  - Vomiting [Recovering/Resolving]
  - Pallor [Unknown]
  - Body temperature fluctuation [Unknown]
  - Dysphagia [Unknown]
  - Urticaria [Recovered/Resolved]
  - Therapy non-responder [Unknown]
  - Asthenia [Unknown]
  - Serum ferritin decreased [Recovering/Resolving]
  - Epistaxis [Unknown]
  - Serum ferritin increased [Recovering/Resolving]
  - Pruritus [Unknown]
  - Weight decreased [Unknown]
  - Abdominal distension [Unknown]
  - Inappropriate schedule of product administration [Unknown]
  - Nasal congestion [Unknown]
  - Abdominal pain [Recovered/Resolved]
  - Malaise [Recovering/Resolving]
  - Abdominal pain upper [Recovered/Resolved]
  - Wrong technique in product usage process [Unknown]

NARRATIVE: CASE EVENT DATE: 20160922
